FAERS Safety Report 8487982-6 (Version None)
Quarter: 2012Q3

REPORT INFORMATION
  Report Type: 
  Country: None (occurrence: None)
  Receive Date: 20120705
  Receipt Date: 20120628
  Transmission Date: 20120928
  Serious: Yes (Other)
  Sender: FDA-Public Use
  Company Number: PHHY2011US02817

PATIENT
  Sex: Male
  Weight: 47.6 kg

DRUGS (7)
  1. CARNITOR [Concomitant]
  2. DEPAKOTE [Concomitant]
     Dosage: 1500 MG, DAILY
  3. TENEX [Concomitant]
  4. ARNIKA [Concomitant]
     Dosage: UNK UKN, DAILY
  5. AFINITOR [Suspect]
     Indication: TUBEROUS SCLEROSIS
     Dosage: 7.5 MG, DAILY
     Route: 048
     Dates: start: 20110103, end: 20111006
  6. AMIKA [Concomitant]
  7. MIRALAX [Concomitant]
     Dosage: UNK UKN, UNK

REACTIONS (8)
  - PARONYCHIA [None]
  - INFLAMMATION [None]
  - ACNE [None]
  - ABDOMINAL DISTENSION [None]
  - COUGH [None]
  - AGGRESSION [None]
  - FATIGUE [None]
  - PAIN [None]
